FAERS Safety Report 6424554-9 (Version None)
Quarter: 2009Q4

REPORT INFORMATION
  Report Type: 
  Country: None (occurrence: None)
  Receive Date: 20091030
  Receipt Date: 20091030
  Transmission Date: 20100525
  Serious: Yes (Hospitalization)
  Sender: FDA-Public Use
  Company Number: None

PATIENT
  Age: 73 Year
  Sex: Male
  Weight: 108.3 kg

DRUGS (2)
  1. HEPARIN [Suspect]
     Indication: CARDIOVASCULAR DISORDER
     Dosage: 5000 UNITS BID IV
     Route: 042
     Dates: start: 20080911, end: 20080916
  2. HEPARIN [Suspect]
     Indication: SURGERY
     Dosage: 5000 UNITS BID IV
     Route: 042
     Dates: start: 20080911, end: 20080916

REACTIONS (1)
  - THROMBOCYTOPENIA [None]
